FAERS Safety Report 5879939-6 (Version None)
Quarter: 2008Q3

REPORT INFORMATION
  Report Type: 
  Country: None (occurrence: None)
  Receive Date: 20080911
  Receipt Date: 20080911
  Transmission Date: 20090109
  Serious: No
  Sender: FDA-Public Use
  Company Number: None

PATIENT
  Sex: Female
  Weight: 61.2356 kg

DRUGS (1)
  1. TOPROL-XL [Suspect]

REACTIONS (6)
  - ANXIETY [None]
  - BLOOD PRESSURE FLUCTUATION [None]
  - EXTRASYSTOLES [None]
  - MALAISE [None]
  - TREMOR [None]
  - VISUAL IMPAIRMENT [None]
